FAERS Safety Report 19323334 (Version 1)
Quarter: 2021Q2

REPORT INFORMATION
  Report Type: Spontaneous
  Country: US (occurrence: US)
  Receive Date: 20210528
  Receipt Date: 20210528
  Transmission Date: 20210717
  Serious: Yes (Other)
  Sender: FDA-Public Use
  Company Number: US-PURDUE-USA-2020-0226334

PATIENT

DRUGS (1)
  1. OXYCODONE HYDROCHLORIDE (SIMILAR TO NDA 22?272) [Suspect]
     Active Substance: OXYCODONE HYDROCHLORIDE
     Indication: PAIN
     Dosage: UNK
     Route: 048

REACTIONS (10)
  - Drug dependence [Unknown]
  - Dry mouth [Unknown]
  - Somnolence [Unknown]
  - Insomnia [Unknown]
  - Anxiety [Unknown]
  - Diplopia [Unknown]
  - Thinking abnormal [Unknown]
  - Abdominal discomfort [Unknown]
  - Mood altered [Unknown]
  - Withdrawal syndrome [Unknown]
